FAERS Safety Report 24717228 (Version 1)
Quarter: 2024Q4

REPORT INFORMATION
  Report Type: Spontaneous
  Country: US (occurrence: US)
  Receive Date: 20241210
  Receipt Date: 20241210
  Transmission Date: 20250114
  Serious: Yes (Other)
  Sender: BANNER
  Company Number: US-BANNER LIFE SCIENCES-USBAN24000170

PATIENT

DRUGS (1)
  1. BAFIERTAM [Suspect]
     Active Substance: MONOMETHYL FUMARATE
     Indication: Product used for unknown indication

REACTIONS (2)
  - Central nervous system lesion [Unknown]
  - Drug ineffective [Unknown]
